FAERS Safety Report 5728533-6 (Version None)
Quarter: 2008Q2

REPORT INFORMATION
  Report Type: 
  Country: None (occurrence: None)
  Receive Date: 20080506
  Receipt Date: 20080421
  Transmission Date: 20081010
  Serious: Yes (Death)
  Sender: FDA-Public Use
  Company Number: SE-TEVA-165343ISR

PATIENT
  Sex: Male
  Weight: 91 kg

DRUGS (6)
  1. DOXORUBICIN HCL [Suspect]
  2. VINCRISTINE [Suspect]
  3. CYCLOPHOSPHAMIDE [Suspect]
  4. METOCLOPRAMIDE [Concomitant]
  5. MIDAZOLAM HCL [Concomitant]
  6. PARACETAMOL [Concomitant]

REACTIONS (2)
  - DRUG ADMINISTRATION ERROR [None]
  - EXTRAVASATION [None]
